FAERS Safety Report 4844472-7 (Version None)
Quarter: 2005Q4

REPORT INFORMATION
  Report Type: 
  Country: None (occurrence: None)
  Receive Date: 20051202
  Receipt Date: 20051128
  Transmission Date: 20060501
  Serious: Yes (Hospitalization, Disabling)
  Sender: FDA-Public Use
  Company Number: US-MERCK-0511USA04463

PATIENT
  Age: 30 Year
  Sex: Male

DRUGS (2)
  1. VIOXX [Suspect]
     Indication: JOINT SPRAIN
     Route: 048
     Dates: start: 20010101, end: 20030101
  2. VIOXX [Suspect]
     Indication: BACK PAIN
     Route: 048
     Dates: start: 20010101, end: 20030101

REACTIONS (10)
  - ARTERIOSPASM CORONARY [None]
  - BLOOD PRESSURE SYSTOLIC INCREASED [None]
  - BUNDLE BRANCH BLOCK RIGHT [None]
  - CHEST PAIN [None]
  - CORONARY ARTERY THROMBOSIS [None]
  - FALL [None]
  - HEART RATE INCREASED [None]
  - MYOCARDIAL INFARCTION [None]
  - MYOCARDITIS [None]
  - SUBENDOCARDIAL ISCHAEMIA [None]
